FAERS Safety Report 19197506 (Version 1)
Quarter: 2021Q2

REPORT INFORMATION
  Report Type: Spontaneous
  Country: DE (occurrence: DE)
  Receive Date: 20210430
  Receipt Date: 20210430
  Transmission Date: 20210717
  Serious: Yes (Death, Other)
  Sender: FDA-Public Use
  Company Number: DE-LUPIN PHARMACEUTICALS INC.-2021-05764

PATIENT
  Age: 20 Year
  Sex: Male

DRUGS (1)
  1. METHYLPHENIDATE. [Suspect]
     Active Substance: METHYLPHENIDATE
     Indication: ATTENTION DEFICIT HYPERACTIVITY DISORDER
     Dosage: UNK
     Route: 065

REACTIONS (6)
  - Vasculitis [Fatal]
  - Coronary artery thrombosis [Fatal]
  - Myocardial infarction [Fatal]
  - Arteritis coronary [Fatal]
  - Cardiac aneurysm [Fatal]
  - Coronary artery aneurysm [Fatal]
